FAERS Safety Report 7919444-6 (Version None)
Quarter: 2011Q4

REPORT INFORMATION
  Report Type: 
  Country: None (occurrence: None)
  Receive Date: 20111116
  Receipt Date: 20111116
  Transmission Date: 20120403
  Serious: Yes (Death)
  Sender: FDA-Public Use
  Company Number: None

PATIENT
  Sex: Female
  Weight: 75.9 kg

DRUGS (5)
  1. TRAZTUZUMAB [Concomitant]
  2. CARBOPLATIN [Concomitant]
  3. PALONOSETRON [Concomitant]
  4. TAXOTERE [Suspect]
     Indication: BREAST CANCER
     Dosage: 135 MG EVERY 3 WEEKS IVPB
     Route: 042
     Dates: start: 20111024
  5. DEXAMETHASONE [Concomitant]

REACTIONS (12)
  - UNRESPONSIVE TO STIMULI [None]
  - HYPOTENSION [None]
  - RESPIRATORY DISTRESS [None]
  - ABDOMINAL COMPARTMENT SYNDROME [None]
  - INTESTINAL ISCHAEMIA [None]
  - PNEUMATOSIS [None]
  - INTESTINAL PERFORATION [None]
  - GASTROINTESTINAL NECROSIS [None]
  - ABDOMINAL PAIN [None]
  - URINARY RETENTION [None]
  - SHOCK [None]
  - DIARRHOEA [None]
